FAERS Safety Report 6479641-6 (Version None)
Quarter: 2009Q4

REPORT INFORMATION
  Report Type: 
  Country: None (occurrence: None)
  Receive Date: 20091204
  Receipt Date: 20091204
  Transmission Date: 20100525
  Serious: Yes (Hospitalization)
  Sender: FDA-Public Use
  Company Number: None

PATIENT
  Age: 57 Year
  Sex: Male
  Weight: 72.5755 kg

DRUGS (7)
  1. PANITUMUMAB [Suspect]
     Indication: COLON CANCER METASTATIC
     Dosage: 6MG/KG Q14 DAY IV BOLUS
     Route: 040
  2. COLACE [Concomitant]
  3. PUROSEMIDE [Concomitant]
  4. ALL PRESENT: PERCOCET [Concomitant]
  5. PYRIDOXINE HCL [Concomitant]
  6. TRIAMCINLONE [Concomitant]
  7. ALDACTONE [Concomitant]

REACTIONS (6)
  - ABDOMINAL PAIN [None]
  - DEHYDRATION [None]
  - DYSPNOEA [None]
  - PERITONITIS [None]
  - RENAL IMPAIRMENT [None]
  - WHITE BLOOD CELL COUNT INCREASED [None]
